FAERS Safety Report 20610035 (Version 3)
Quarter: 2024Q4

REPORT INFORMATION
  Report Type: Spontaneous
  Country: PL (occurrence: PL)
  Receive Date: 20220318
  Receipt Date: 20241020
  Transmission Date: 20250115
  Serious: Yes (Other)
  Sender: AUROBINDO
  Company Number: PL-PFIZER INC-202200325392

PATIENT
  Age: 8 Day
  Sex: Male

DRUGS (14)
  1. FLUCONAZOLE [Suspect]
     Active Substance: FLUCONAZOLE
     Indication: Antibiotic therapy
     Dosage: UNK
     Route: 065
  2. FLUCONAZOLE [Suspect]
     Active Substance: FLUCONAZOLE
     Indication: Sepsis
  3. FLUCONAZOLE [Suspect]
     Active Substance: FLUCONAZOLE
     Indication: Necrotising enterocolitis neonatal
  4. AMIKACIN [Suspect]
     Active Substance: AMIKACIN
     Indication: Antibiotic therapy
     Dosage: UNK
     Route: 065
  5. AMIKACIN [Suspect]
     Active Substance: AMIKACIN
     Indication: Necrotising enterocolitis neonatal
  6. AMIKACIN [Suspect]
     Active Substance: AMIKACIN
     Indication: Sepsis
  7. MEROPENEM [Suspect]
     Active Substance: MEROPENEM
     Indication: Antibiotic therapy
     Dosage: UNK
     Route: 065
  8. MEROPENEM [Suspect]
     Active Substance: MEROPENEM
     Indication: Sepsis
  9. MEROPENEM [Suspect]
     Active Substance: MEROPENEM
     Indication: Necrotising enterocolitis neonatal
  10. DOPAMINE [Concomitant]
     Active Substance: DOPAMINE HYDROCHLORIDE
     Indication: Circulatory failure neonatal
     Dosage: UNK
     Route: 065
  11. EPINEPHRINE [Concomitant]
     Active Substance: EPINEPHRINE
     Indication: Circulatory collapse
     Dosage: UNK
     Route: 065
  12. FOSFOMYCIN [Concomitant]
     Active Substance: FOSFOMYCIN
     Indication: Antibiotic therapy
     Dosage: UNK
     Route: 065
  13. PIPERACILLIN SODIUM\TAZOBACTAM SODIUM [Concomitant]
     Active Substance: PIPERACILLIN SODIUM\TAZOBACTAM SODIUM
     Indication: Antibiotic therapy
     Dosage: UNK
     Route: 065
  14. VANCOMYCIN [Concomitant]
     Active Substance: VANCOMYCIN
     Indication: Antibiotic therapy
     Dosage: UNK
     Route: 065

REACTIONS (4)
  - Neonatal seizure [Recovering/Resolving]
  - Pathogen resistance [Unknown]
  - Drug ineffective [Recovering/Resolving]
  - Off label use [Unknown]
